FAERS Safety Report 8464971-9 (Version None)
Quarter: 2012Q2

REPORT INFORMATION
  Report Type: 
  Country: None (occurrence: None)
  Receive Date: 20120626
  Receipt Date: 20120618
  Transmission Date: 20120825
  Serious: Yes (Death, Hospitalization)
  Sender: FDA-Public Use
  Company Number: FR-SANOFI-AVENTIS-2012SA014324

PATIENT
  Age: 58 Year
  Sex: Male

DRUGS (10)
  1. METFORMIN HCL [Concomitant]
  2. TRAMADOL HCL [Concomitant]
  3. LOVENOX [Suspect]
     Indication: PROPHYLAXIS
     Route: 058
     Dates: start: 20120112, end: 20120201
  4. POTASSIUM CHLORIDE [Concomitant]
  5. LOVENOX [Suspect]
     Route: 058
     Dates: start: 20120206, end: 20120206
  6. AMARYL [Concomitant]
  7. HEPARIN SODIUM [Suspect]
     Route: 042
     Dates: start: 20120207, end: 20120211
  8. LASIX [Concomitant]
  9. TRAMADOL HCL [Concomitant]
  10. PREDNISONE TAB [Concomitant]

REACTIONS (1)
  - HEPARIN-INDUCED THROMBOCYTOPENIA [None]
